FAERS Safety Report 9829953 (Version 5)
Quarter: 2014Q1

REPORT INFORMATION
  Report Type: Spontaneous
  Country: JP (occurrence: JP)
  Receive Date: 20140120
  Receipt Date: 20140303
  Transmission Date: 20141002
  Serious: Yes (Hospitalization)
  Sender: FDA-Public Use
  Company Number: JP-SA-2014SA005586

PATIENT
  Age: 70 Year
  Sex: Female
  Weight: 49.2 kg

DRUGS (12)
  1. PLAVIX [Suspect]
     Indication: CORONARY ARTERIAL STENT INSERTION
     Route: 048
     Dates: start: 20131022, end: 20140109
  2. FEBURIC [Suspect]
     Indication: HYPERURICAEMIA
     Route: 048
     Dates: start: 20131218, end: 20140106
  3. MEXITIL [Suspect]
     Indication: VENTRICULAR EXTRASYSTOLES
     Route: 048
     Dates: start: 20131203, end: 20140106
  4. DIART [Concomitant]
     Route: 048
     Dates: end: 20140107
  5. ALDACTONE-A [Concomitant]
     Route: 048
     Dates: end: 20140107
  6. FLUITRAN [Concomitant]
     Route: 048
     Dates: end: 20140107
  7. ARTIST [Concomitant]
     Route: 048
     Dates: end: 20140110
  8. NEXIUM [Concomitant]
     Route: 048
     Dates: end: 20140110
  9. SIGMART [Concomitant]
     Route: 048
     Dates: end: 20140110
  10. CRESTOR [Concomitant]
     Route: 048
     Dates: end: 20140107
  11. BAYASPIRIN [Concomitant]
     Route: 048
  12. RENIVACE [Concomitant]
     Route: 048
     Dates: end: 20140110

REACTIONS (9)
  - Renal tubular necrosis [Recovering/Resolving]
  - Drug-induced liver injury [Recovering/Resolving]
  - Alanine aminotransferase increased [Not Recovered/Not Resolved]
  - Vomiting [Not Recovered/Not Resolved]
  - Nausea [Not Recovered/Not Resolved]
  - Aspartate aminotransferase increased [Not Recovered/Not Resolved]
  - Rash [Recovering/Resolving]
  - Pruritus [Recovering/Resolving]
  - Pyrexia [Recovering/Resolving]
